FAERS Safety Report 21894964 (Version 2)
Quarter: 2023Q1

REPORT INFORMATION
  Report Type: Report from Study
  Country: FR (occurrence: FR)
  Receive Date: 20230122
  Receipt Date: 20230207
  Transmission Date: 20230418
  Serious: Yes (Hospitalization)
  Sender: FDA-Public Use
  Company Number: FR-AMGEN-FRACT2023009857

PATIENT
  Age: 54 Year
  Sex: Male
  Weight: 54 kg

DRUGS (9)
  1. CARFILZOMIB [Suspect]
     Active Substance: CARFILZOMIB
     Indication: Plasma cell myeloma
     Dosage: 20 MILLIGRAM/SQ. METER, PER CHEMO REGIM
     Route: 040
     Dates: start: 20230110
  2. CARFILZOMIB [Suspect]
     Active Substance: CARFILZOMIB
     Dosage: 20 MILLIGRAM/SQ. METER, PER CHEMO REGIM
     Route: 040
  3. CARFILZOMIB [Suspect]
     Active Substance: CARFILZOMIB
     Dosage: UNK, PER CHEMO REGIM
     Route: 040
     Dates: start: 20230116
  4. ISATUXIMAB [Suspect]
     Active Substance: ISATUXIMAB
     Indication: Plasma cell myeloma
     Dosage: 560 MILLIGRAM, PER CHEMO REGIM
     Route: 040
     Dates: start: 20230110
  5. ISATUXIMAB [Suspect]
     Active Substance: ISATUXIMAB
     Dosage: UNK, PER CHEMO REGIM
     Route: 040
     Dates: start: 20230110
  6. ISATUXIMAB [Suspect]
     Active Substance: ISATUXIMAB
     Dosage: UNK, PER CHEMO REGIM
     Route: 040
     Dates: start: 20230116
  7. ISATUXIMAB [Suspect]
     Active Substance: ISATUXIMAB
     Dosage: UNK, PER CHEMO REGIM
     Route: 040
     Dates: start: 20230116
  8. LENALIDOMIDE [Suspect]
     Active Substance: LENALIDOMIDE
     Indication: Plasma cell myeloma
     Dosage: 25 MILLIGRAM, PER CHEMO REGIM
     Route: 048
     Dates: start: 20230110
  9. DEXAMETHASONE [Suspect]
     Active Substance: DEXAMETHASONE
     Indication: Plasma cell myeloma
     Dosage: 10 MILLIGRAM, PER CHEMO REGIM
     Route: 048
     Dates: start: 20230110

REACTIONS (3)
  - Rash [Recovered/Resolved]
  - Pyrexia [Recovered/Resolved]
  - Bone pain [Recovering/Resolving]

NARRATIVE: CASE EVENT DATE: 20230113
